FAERS Safety Report 7008526-1 (Version None)
Quarter: 2010Q3

REPORT INFORMATION
  Report Type: 
  Country: None (occurrence: None)
  Receive Date: 20100922
  Receipt Date: 20100914
  Transmission Date: 20110219
  Serious: No
  Sender: FDA-Public Use
  Company Number: US-PFIZER INC-2010117452

PATIENT
  Sex: Female
  Weight: 79.819 kg

DRUGS (1)
  1. ZITHROMAX [Suspect]
     Indication: CHLAMYDIAL INFECTION
     Dosage: 4 G, 1X/DAY
     Dates: start: 20100806, end: 20100806

REACTIONS (2)
  - OVERDOSE [None]
  - VOMITING [None]
